FAERS Safety Report 12791819 (Version 1)
Quarter: 2016Q3

REPORT INFORMATION
  Report Type: Spontaneous
  Country: NL (occurrence: NL)
  Receive Date: 20160929
  Receipt Date: 20160929
  Transmission Date: 20161109
  Serious: Yes (Death, Other)
  Sender: FDA-Public Use
  Company Number: NL-TEVA-695485ACC

PATIENT
  Age: 81 Year
  Sex: Female

DRUGS (2)
  1. METFORMINE HYDROCHLORIDE [Interacting]
     Active Substance: METFORMIN HYDROCHLORIDE
     Indication: TYPE 2 DIABETES MELLITUS
     Route: 048
     Dates: start: 2010
  2. SOTALOL HYDROCHLORIDE. [Suspect]
     Active Substance: SOTALOL HYDROCHLORIDE
     Indication: PRODUCT USED FOR UNKNOWN INDICATION
     Route: 048
     Dates: start: 2015

REACTIONS (7)
  - Acidosis [Unknown]
  - Drug interaction [Fatal]
  - Bradycardia [Fatal]
  - Cardiogenic shock [Fatal]
  - Atrioventricular block [Fatal]
  - Hyperkalaemia [Fatal]
  - Renal failure [Fatal]

NARRATIVE: CASE EVENT DATE: 201604
